FAERS Safety Report 23632172 (Version 1)
Quarter: 2024Q1

REPORT INFORMATION
  Report Type: Spontaneous
  Country: US (occurrence: US)
  Receive Date: 20240314
  Receipt Date: 20240314
  Transmission Date: 20240409
  Serious: No
  Sender: FDA-Public Use
  Company Number: US-SA-SAC20240307001230

PATIENT
  Age: 64 Year
  Sex: Female
  Weight: 87.9 kg

DRUGS (1)
  1. DUPIXENT [Suspect]
     Active Substance: DUPILUMAB
     Indication: Dermatitis atopic
     Dosage: 300MG QOW
     Route: 058

REACTIONS (6)
  - Pain [Unknown]
  - Myalgia [Unknown]
  - Swelling [Unknown]
  - Sleep disorder due to a general medical condition [Unknown]
  - Pruritus [Unknown]
  - Injection site pain [Unknown]

NARRATIVE: CASE EVENT DATE: 20240229
